FAERS Safety Report 9400364 (Version 1)
Quarter: 2013Q3

REPORT INFORMATION
  Report Type: Spontaneous
  Country: KR (occurrence: None)
  Receive Date: 20130711
  Receipt Date: 20130711
  Transmission Date: 20140515
  Serious: Yes (Other)
  Sender: FDA-Public Use
  Company Number: FK201302416

PATIENT
  Age: 69 Year
  Sex: Male

DRUGS (2)
  1. VALPROATE [Suspect]
     Indication: CONVULSION
     Route: 048
  2. ERTAPENEM (ERTAPENEM) [Concomitant]

REACTIONS (4)
  - Convulsion [None]
  - Drug interaction [None]
  - Drug effect decreased [None]
  - Drug level decreased [None]
